FAERS Safety Report 23144416 (Version 1)
Quarter: 2023Q4

REPORT INFORMATION
  Report Type: Spontaneous
  Country: ZA (occurrence: ZA)
  Receive Date: 20231103
  Receipt Date: 20231103
  Transmission Date: 20240109
  Serious: Yes (Other)
  Sender: FDA-Public Use
  Company Number: ZA-ORGANON-O2310ZAF003661

PATIENT
  Sex: Male

DRUGS (1)
  1. FOSAVANCE [Suspect]
     Active Substance: ALENDRONATE SODIUM\CHOLECALCIFEROL
     Indication: Osteoporosis
     Dosage: UNK
     Route: 048
     Dates: start: 2018

REACTIONS (2)
  - Spinal fracture [Unknown]
  - Drug ineffective [Unknown]
